FAERS Safety Report 5026497-4 (Version None)
Quarter: 2006Q2

REPORT INFORMATION
  Report Type: 
  Country: None (occurrence: None)
  Receive Date: 20060428
  Receipt Date: 20060206
  Transmission Date: 20061013
  Serious: Yes (Hospitalization)
  Sender: FDA-Public Use
  Company Number: MK200602-0086-1

PATIENT
  Sex: Female

DRUGS (13)
  1. RESTORIL [Suspect]
     Indication: INSOMNIA
     Dosage: 60MG, ONE TIME
     Dates: start: 20060103, end: 20060103
  2. PREDNISONE [Concomitant]
  3. METHYLPREDNISOLONE [Concomitant]
  4. BACLOFEN [Concomitant]
  5. IBUPROFEN [Concomitant]
  6. GABAPENTIN [Concomitant]
  7. TYLENOL W/ CODEINE NO. 3 [Concomitant]
  8. LIBRIUM [Concomitant]
  9. QUETIAPINE FUMARATE [Concomitant]
  10. AMITRIPTYLINE HCL [Concomitant]
  11. ACETAMINOPHEN [Concomitant]
  12. PREDNISONE [Concomitant]
  13. METHYLPREDNISOLONE [Concomitant]

REACTIONS (1)
  - SOMNOLENCE [None]
